FAERS Safety Report 17922919 (Version 1)
Quarter: 2020Q2

REPORT INFORMATION
  Report Type: Spontaneous
  Country: US (occurrence: US)
  Receive Date: 20200620
  Receipt Date: 20200620
  Transmission Date: 20200714
  Serious: Yes (Other)
  Sender: FDA-Public Use
  Company Number: None

PATIENT
  Age: 38 Year
  Sex: Male
  Weight: 99 kg

DRUGS (5)
  1. CELEXA [Concomitant]
     Active Substance: CITALOPRAM HYDROBROMIDE
  2. LEVOTHYROXINE. [Concomitant]
     Active Substance: LEVOTHYROXINE
  3. HARD TIMES FOR MEN EXTREME MALE ENHENCE [Suspect]
     Active Substance: DIETARY SUPPLEMENT
     Indication: ERECTILE DYSFUNCTION
     Route: 048
     Dates: start: 20200620, end: 20200620
  4. ONE-A-DAY FOR MEN [Concomitant]
  5. ADDERALL [Concomitant]
     Active Substance: AMPHETAMINE ASPARTATE\AMPHETAMINE SULFATE\DEXTROAMPHETAMINE SACCHARATE\DEXTROAMPHETAMINE SULFATE

REACTIONS (7)
  - Hot flush [None]
  - Dry throat [None]
  - Abdominal pain upper [None]
  - Feeling cold [None]
  - Vomiting projectile [None]
  - Salivary hypersecretion [None]
  - Tremor [None]

NARRATIVE: CASE EVENT DATE: 20200620
